FAERS Safety Report 24445442 (Version 5)
Quarter: 2024Q4

REPORT INFORMATION
  Report Type: Spontaneous
  Country: JP (occurrence: JP)
  Receive Date: 20241016
  Receipt Date: 20241229
  Transmission Date: 20250114
  Serious: Yes (Hospitalization, Other)
  Sender: ALEXION PHARMACEUTICALS
  Company Number: JP-ASTRAZENECA-240106628_032620_P_1

PATIENT
  Age: 4 Decade

DRUGS (20)
  1. FASENRA [Suspect]
     Active Substance: BENRALIZUMAB
     Indication: Asthma
     Dosage: 30 MILLIGRAM, Q3W
  2. FASENRA [Suspect]
     Active Substance: BENRALIZUMAB
     Dosage: 30 MILLIGRAM, Q3W
     Route: 058
  3. FASENRA [Suspect]
     Active Substance: BENRALIZUMAB
     Dosage: 30 MILLIGRAM, Q3W
  4. FASENRA [Suspect]
     Active Substance: BENRALIZUMAB
     Dosage: 30 MILLIGRAM, Q3W
     Route: 058
  5. BILASTINE [Concomitant]
     Active Substance: BILASTINE
     Dosage: DOSE UNKNOWN
     Route: 065
  6. BILASTINE [Concomitant]
     Active Substance: BILASTINE
     Dosage: DOSE UNKNOWN
     Route: 065
  7. THEOPHYLLINE ANHYDROUS [Concomitant]
     Active Substance: THEOPHYLLINE ANHYDROUS
     Dosage: DOSE UNKNOWN
     Route: 065
  8. THEOPHYLLINE ANHYDROUS [Concomitant]
     Active Substance: THEOPHYLLINE ANHYDROUS
     Dosage: DOSE UNKNOWN
     Route: 065
  9. PREDONINE [Concomitant]
     Active Substance: PREDNISOLONE
     Dosage: AS REQUIRED
  10. PREDONINE [Concomitant]
     Active Substance: PREDNISOLONE
     Dosage: AS REQUIRED
     Route: 048
  11. PREDONINE [Concomitant]
     Active Substance: PREDNISOLONE
     Dosage: AS REQUIRED
  12. PREDONINE [Concomitant]
     Active Substance: PREDNISOLONE
     Dosage: AS REQUIRED
     Route: 048
  13. RABEPRAZOLE SODIUM [Concomitant]
     Active Substance: RABEPRAZOLE SODIUM
     Dosage: DOSE UNKNOWN
     Route: 065
  14. RABEPRAZOLE SODIUM [Concomitant]
     Active Substance: RABEPRAZOLE SODIUM
     Dosage: DOSE UNKNOWN
     Route: 065
  15. BUDESONIDE [Concomitant]
     Active Substance: BUDESONIDE
     Dosage: 160 MICROGRAM
  16. BUDESONIDE [Concomitant]
     Active Substance: BUDESONIDE
     Dosage: 160 MICROGRAM
     Route: 055
  17. BUDESONIDE [Concomitant]
     Active Substance: BUDESONIDE
     Dosage: DOSE UNKNOWN
  18. BUDESONIDE [Concomitant]
     Active Substance: BUDESONIDE
     Dosage: DOSE UNKNOWN
     Route: 055
  19. SINGULAIR [Concomitant]
     Active Substance: MONTELUKAST SODIUM
     Dosage: DOSE UNKNOWN
     Route: 065
  20. SINGULAIR [Concomitant]
     Active Substance: MONTELUKAST SODIUM
     Dosage: DOSE UNKNOWN
     Route: 065

REACTIONS (12)
  - Abdominal discomfort [Recovered/Resolved]
  - Anaphylactic reaction [Recovering/Resolving]
  - Pyrexia [Recovering/Resolving]
  - Asthma [Recovering/Resolving]
  - Fall [Unknown]
  - Nausea [Unknown]
  - Headache [Unknown]
  - Dizziness [Unknown]
  - Gait disturbance [Unknown]
  - Loss of consciousness [Unknown]
  - Pain in extremity [Not Recovered/Not Resolved]
  - Physical deconditioning [Unknown]
